FAERS Safety Report 5697919-0 (Version None)
Quarter: 2008Q2

REPORT INFORMATION
  Report Type: 
  Country: None (occurrence: None)
  Receive Date: 20080408
  Receipt Date: 20080403
  Transmission Date: 20081010
  Serious: Yes (Other)
  Sender: FDA-Public Use
  Company Number: DE-BRISTOL-MYERS SQUIBB COMPANY-14116909

PATIENT
  Age: 57 Year
  Sex: Female
  Weight: 75 kg

DRUGS (4)
  1. ORENCIA [Suspect]
     Indication: POLYARTHRITIS
     Dosage: THIRD INFUSION
     Route: 042
     Dates: start: 20071101, end: 20071122
  2. METHOTREXATE [Concomitant]
     Indication: POLYARTHRITIS
     Route: 048
     Dates: start: 19990118
  3. PREDNISOLONE [Concomitant]
     Indication: POLYARTHRITIS
     Route: 048
     Dates: start: 19980427
  4. DICLOFENAC SODIUM [Concomitant]
     Indication: POLYARTHRITIS
     Dates: start: 20001113

REACTIONS (2)
  - ROSACEA [None]
  - UPPER RESPIRATORY TRACT INFECTION [None]
